FAERS Safety Report 9132467 (Version 1)
Quarter: 2013Q1

REPORT INFORMATION
  Report Type: Spontaneous
  Country: US (occurrence: US)
  Receive Date: 20130120
  Receipt Date: 20130120
  Transmission Date: 20140127
  Serious: No
  Sender: FDA-Public Use
  Company Number: US-ALLERGAN-1212574US

PATIENT
  Sex: Female

DRUGS (2)
  1. BOTOX COSMETIC [Suspect]
     Indication: SKIN WRINKLING
     Dosage: UNK
     Dates: start: 20120831, end: 20120831
  2. BOTOX COSMETIC [Suspect]
     Dosage: UNK
     Dates: start: 201112, end: 201112

REACTIONS (4)
  - Throat tightness [Recovered/Resolved]
  - Dysphagia [Unknown]
  - Dyspnoea [Unknown]
  - Eyelid ptosis [Recovered/Resolved]
